FAERS Safety Report 19296433 (Version 2)
Quarter: 2021Q4

REPORT INFORMATION
  Report Type: Spontaneous
  Country: US (occurrence: US)
  Receive Date: 20210524
  Receipt Date: 20211227
  Transmission Date: 20220303
  Serious: Yes (Death, Other)
  Sender: FDA-Public Use
  Company Number: US-PURDUE-USA-2020-0165377

PATIENT
  Age: 31 Year
  Sex: Male

DRUGS (4)
  1. OXYCONTIN [Suspect]
     Active Substance: OXYCODONE HYDROCHLORIDE
     Indication: Back injury
     Dosage: UNK
     Route: 048
  2. OXYCODONE HYDROCHLORIDE [Suspect]
     Active Substance: OXYCODONE HYDROCHLORIDE
     Indication: Product used for unknown indication
     Dosage: UNK
     Route: 048
  3. OXYCODONE HYDROCHLORIDE [Suspect]
     Active Substance: OXYCODONE HYDROCHLORIDE
     Indication: Product used for unknown indication
     Dosage: 15 MG (TAKE ONE TABLET BY MOUTH EVERY 6-8 HOURS AS NEEDED)
     Route: 065
  4. OXYCODONE HYDROCHLORIDE [Suspect]
     Active Substance: OXYCODONE HYDROCHLORIDE
     Dosage: 30 MG (TAKE ONE TABLET BY MOUTH EVERY 4-6 HOURS WHEN NECESSARY)
     Route: 065

REACTIONS (4)
  - Accidental overdose [Fatal]
  - Drug dependence [Unknown]
  - Injury [Unknown]
  - Mental disorder [Unknown]

NARRATIVE: CASE EVENT DATE: 20140506
